FAERS Safety Report 5198369-6 (Version None)
Quarter: 2006Q4

REPORT INFORMATION
  Report Type: 
  Country: None (occurrence: None)
  Receive Date: 20061228
  Receipt Date: 20061228
  Transmission Date: 20070319
  Serious: Yes (Life-Threatening, Hospitalization)
  Sender: FDA-Public Use
  Company Number: None

PATIENT
  Age: 81 Year
  Sex: Male
  Weight: 75 kg

DRUGS (6)
  1. ATENOLOL [Suspect]
     Indication: HYPERTENSION
     Dosage: DAILY  RECENT
  2. COZAAR [Concomitant]
  3. GLUCOPHAGE [Concomitant]
  4. HYDROCHLOROTHIAZIDE [Concomitant]
  5. INSULIN [Concomitant]
  6. ASPIRIN [Concomitant]

REACTIONS (5)
  - ASTHENIA [None]
  - ATRIOVENTRICULAR BLOCK SECOND DEGREE [None]
  - BLOOD GLUCOSE INCREASED [None]
  - HYPERHIDROSIS [None]
  - NAUSEA [None]
